FAERS Safety Report 20789498 (Version 1)
Quarter: 2022Q2

REPORT INFORMATION
  Report Type: Spontaneous
  Country: GB (occurrence: GB)
  Receive Date: 20220505
  Receipt Date: 20220505
  Transmission Date: 20220721
  Serious: Yes (Other)
  Sender: FDA-Public Use
  Company Number: None

PATIENT
  Sex: Male
  Weight: 70.5 kg

DRUGS (6)
  1. NYSTATIN [Suspect]
     Active Substance: NYSTATIN
     Indication: Oral candidiasis
     Dosage: 1 ML, QID
     Route: 048
     Dates: start: 20220329, end: 20220330
  2. ACETAMINOPHEN\CODEINE PHOSPHATE [Concomitant]
     Active Substance: ACETAMINOPHEN\CODEINE PHOSPHATE
     Indication: Product used for unknown indication
     Dosage: ONE TO TWO (AS NECESSARY)
     Route: 065
     Dates: start: 20161202
  3. LANSOPRAZOLE [Concomitant]
     Active Substance: LANSOPRAZOLE
     Indication: Gastrooesophageal reflux disease
     Dosage: 15 MG, QD
     Route: 048
     Dates: start: 20201230
  4. CLOPIDOGREL [Concomitant]
     Active Substance: CLOPIDOGREL BISULFATE
     Indication: Cerebrovascular accident
     Dosage: 1 DOSAGE FORM, QD (75)
     Route: 065
     Dates: start: 20210114
  5. RAMIPRIL [Concomitant]
     Active Substance: RAMIPRIL
     Indication: Hypertension
     Dosage: 2.5 MG
     Route: 065
     Dates: start: 20220228
  6. GABAPENTIN [Concomitant]
     Active Substance: GABAPENTIN
     Indication: Sciatica
     Dosage: 40 MG, TID
     Route: 048
     Dates: start: 20120104

REACTIONS (1)
  - Muscle spasms [Recovered/Resolved]

NARRATIVE: CASE EVENT DATE: 20220329
